FAERS Safety Report 8984254 (Version 1)
Quarter: 2012Q4

REPORT INFORMATION
  Report Type: Report from Study
  Country: CA (occurrence: CA)
  Receive Date: 20121226
  Receipt Date: 20121226
  Transmission Date: 20130627
  Serious: Yes (Other)
  Sender: FDA-Public Use
  Company Number: CA-JNJFOC-20121209581

PATIENT
  Sex: Male
  Weight: 88.45 kg

DRUGS (1)
  1. REMICADE [Suspect]
     Indication: CROHN^S DISEASE
     Route: 042
     Dates: start: 2011

REACTIONS (5)
  - Malaise [Unknown]
  - Pain [Unknown]
  - Obstruction [Unknown]
  - Micturition urgency [Unknown]
  - Drug ineffective [Unknown]
